FAERS Safety Report 12684657 (Version 1)
Quarter: 2016Q3

REPORT INFORMATION
  Report Type: Spontaneous
  Country: IT (occurrence: IT)
  Receive Date: 20160825
  Receipt Date: 20160825
  Transmission Date: 20161109
  Serious: Yes (Other)
  Sender: FDA-Public Use
  Company Number: PHHY2016IT115772

PATIENT
  Age: 41 Year
  Sex: Female

DRUGS (3)
  1. IBUPROFEN. [Suspect]
     Active Substance: IBUPROFEN
     Indication: PAIN
     Dosage: 400 MG, UNK
     Route: 048
  2. IMODIUM [Suspect]
     Active Substance: LOPERAMIDE HYDROCHLORIDE
     Indication: PAIN
     Dosage: 2 MG, UNK
     Route: 048
  3. MOTILIUM [Suspect]
     Active Substance: DOMPERIDONE
     Indication: PAIN
     Dosage: 10 MG, UNK
     Route: 048

REACTIONS (2)
  - Intentional product misuse [Unknown]
  - Abdominal pain [Unknown]

NARRATIVE: CASE EVENT DATE: 20160715
